FAERS Safety Report 14438131 (Version 2)
Quarter: 2018Q1

REPORT INFORMATION
  Report Type: Report from Study
  Country: LB (occurrence: LB)
  Receive Date: 20180125
  Receipt Date: 20180214
  Transmission Date: 20180509
  Serious: Yes (Death, Hospitalization, Other)
  Sender: FDA-Public Use
  Company Number: PHHY2018LB011878

PATIENT
  Sex: Female

DRUGS (1)
  1. AFINITOR [Suspect]
     Active Substance: EVEROLIMUS
     Indication: BREAST CANCER STAGE IV
     Dosage: 5 MG, QD
     Route: 048
     Dates: start: 201712

REACTIONS (5)
  - Malignant neoplasm progression [Unknown]
  - Metastasis [Fatal]
  - General physical health deterioration [Unknown]
  - Breast cancer stage IV [Unknown]
  - Jaundice [Unknown]
